FAERS Safety Report 24136712 (Version 1)
Quarter: 2024Q3

REPORT INFORMATION
  Report Type: Report from Study
  Country: US (occurrence: US)
  Receive Date: 20240725
  Receipt Date: 20240725
  Transmission Date: 20241017
  Serious: Yes (Death, Other)
  Sender: TAKEDA
  Company Number: US-TAKEDA-2024TUS059612

PATIENT
  Sex: Female
  Weight: 43 kg

DRUGS (3)
  1. FRUQUINTINIB [Suspect]
     Active Substance: FRUQUINTINIB
     Indication: Colon cancer
     Dosage: 5 MILLIGRAM
     Route: 048
     Dates: start: 20240427
  2. FRUQUINTINIB [Suspect]
     Active Substance: FRUQUINTINIB
     Dosage: 4 MILLIGRAM, QD
     Route: 048
  3. CIPROFLOXACIN [Concomitant]
     Active Substance: CIPROFLOXACIN
     Dosage: UNK
     Route: 065

REACTIONS (8)
  - Death [Fatal]
  - Dehydration [Unknown]
  - Feeling abnormal [Unknown]
  - Hypophagia [Unknown]
  - Somnolence [Unknown]
  - Drug intolerance [Unknown]
  - Urinary tract infection [Unknown]
  - Product dose omission issue [Unknown]
